FAERS Safety Report 4367874-4 (Version None)
Quarter: 2004Q2

REPORT INFORMATION
  Report Type: 
  Country: None (occurrence: None)
  Receive Date: 20040601
  Receipt Date: 20040601
  Transmission Date: 20050107
  Serious: Yes (Hospitalization)
  Sender: FDA-Public Use
  Company Number: None

PATIENT
  Age: 48 Year
  Sex: Male
  Weight: 116.4 kg

DRUGS (10)
  1. CITALOPRAM [Suspect]
     Indication: DEPRESSION
     Dosage: 20 MG QD X 7 DAY ORAL,40 MG QD AFTER 7 ORAL
     Route: 048
     Dates: start: 20040413, end: 20040504
  2. . [Concomitant]
  3. BUMETANIDE [Concomitant]
  4. HYDROCODONE 5/ACETAMINOPHEN 500 MG [Concomitant]
  5. METOLAZONE [Concomitant]
  6. METOPROLOL TARTRATE [Concomitant]
  7. TEMAZEPAM [Concomitant]
  8. LEVOTHYROXINE SODIUM [Concomitant]
  9. SYNTHROID [Concomitant]
  10. SPIRONOLACTONE [Concomitant]

REACTIONS (4)
  - KLEBSIELLA INFECTION [None]
  - RESPIRATORY DISORDER [None]
  - SEROTONIN SYNDROME [None]
  - URINARY TRACT INFECTION [None]
